FAERS Safety Report 4847727-5 (Version None)
Quarter: 2005Q4

REPORT INFORMATION
  Report Type: 
  Country: None (occurrence: None)
  Receive Date: 20051205
  Receipt Date: 20051121
  Transmission Date: 20060501
  Serious: Yes (Life-Threatening, Hospitalization, Disabling)
  Sender: FDA-Public Use
  Company Number: 8012622

PATIENT
  Age: 25 Year
  Sex: Female
  Weight: 50 kg

DRUGS (4)
  1. KEPPRA [Suspect]
     Indication: EPILEPSY
     Dosage: 500 MG 3/D PO
     Route: 048
  2. KEPPRA [Suspect]
     Indication: MYOCLONUS
     Dosage: 500 MG 3/D PO
     Route: 048
  3. DEPAKENE [Suspect]
     Indication: MYOCLONUS
     Dosage: PO
     Route: 048
  4. DOLIPRANE [Suspect]
     Dosage: 24 G PO
     Route: 048

REACTIONS (2)
  - MULTIPLE DRUG OVERDOSE [None]
  - SUICIDE ATTEMPT [None]
